FAERS Safety Report 6707115-3 (Version None)
Quarter: 2010Q2

REPORT INFORMATION
  Report Type: 
  Country: None (occurrence: None)
  Receive Date: 20100503
  Receipt Date: 20100428
  Transmission Date: 20101027
  Serious: Yes (Life-Threatening, Hospitalization)
  Sender: FDA-Public Use
  Company Number: B0650129A

PATIENT
  Sex: Male

DRUGS (2)
  1. AUGMENTIN '125' [Suspect]
     Indication: DRUG USE FOR UNKNOWN INDICATION
     Dosage: 1UNIT SINGLE DOSE
     Route: 048
     Dates: start: 20091101, end: 20091101
  2. PROSCAR [Concomitant]
     Route: 048

REACTIONS (8)
  - ANAPHYLACTIC SHOCK [None]
  - DYSPNOEA [None]
  - HYPOTENSION [None]
  - LOSS OF CONSCIOUSNESS [None]
  - MALAISE [None]
  - OXYGEN SATURATION DECREASED [None]
  - SKIN TEST NEGATIVE [None]
  - TYPE I HYPERSENSITIVITY [None]
